FAERS Safety Report 25050550 (Version 1)
Quarter: 2025Q1

REPORT INFORMATION
  Report Type: Report from Study
  Country: US (occurrence: US)
  Receive Date: 20250307
  Receipt Date: 20250307
  Transmission Date: 20250408
  Serious: Yes (Other)
  Sender: ACADIA PHARMACEUTICALS
  Company Number: US-ACADIA PHARMACEUTICALS INC.-ACA-2025-PIM-002027

PATIENT
  Sex: Male

DRUGS (21)
  1. NUPLAZID [Suspect]
     Active Substance: PIMAVANSERIN TARTRATE
     Indication: Parkinson^s disease
     Dosage: 34 MILLIGRAM, QD
     Route: 048
     Dates: start: 2020
  2. SENNA LEAF [Concomitant]
     Active Substance: SENNA LEAF
  3. ALBUTEROL SULFATE [Concomitant]
     Active Substance: ALBUTEROL SULFATE
  4. CARBIDOPA LEVODOPA [Concomitant]
     Active Substance: CARBIDOPA\LEVODOPA
  5. XARELTO [Concomitant]
     Active Substance: RIVAROXABAN
  6. FLUOCINOLONE [Concomitant]
     Active Substance: FLUOCINOLONE
  7. COLACE [Concomitant]
     Active Substance: DOCUSATE SODIUM
  8. ATORVASTATIN [Concomitant]
     Active Substance: ATORVASTATIN
  9. SEROQUEL [Concomitant]
     Active Substance: QUETIAPINE FUMARATE
  10. FARXIGA [Concomitant]
     Active Substance: DAPAGLIFLOZIN PROPANEDIOL
  11. LEVOTHYROXINE [Concomitant]
     Active Substance: LEVOTHYROXINE
  12. LISINOPRIL [Concomitant]
     Active Substance: LISINOPRIL
  13. ASPIRIN [Concomitant]
     Active Substance: ASPIRIN
  14. LASIX [Concomitant]
     Active Substance: FUROSEMIDE
  15. GLIPIZIDE [Concomitant]
     Active Substance: GLIPIZIDE
  16. MAGNESIUM [Concomitant]
     Active Substance: MAGNESIUM
  17. CHOLECALCIFEROL [Concomitant]
     Active Substance: CHOLECALCIFEROL
  18. NYSTATIN [Concomitant]
     Active Substance: NYSTATIN
  19. CLONAZEPAM [Concomitant]
     Active Substance: CLONAZEPAM
  20. KEPPRA [Concomitant]
     Active Substance: LEVETIRACETAM
  21. POTASSIUM [Concomitant]
     Active Substance: POTASSIUM

REACTIONS (3)
  - Hallucination [Unknown]
  - Agitation [Unknown]
  - Product availability issue [Unknown]
